FAERS Safety Report 9521700 (Version 1)
Quarter: 2013Q3

REPORT INFORMATION
  Report Type: Report from Study
  Country: BR (occurrence: BR)
  Receive Date: 20130913
  Receipt Date: 20130913
  Transmission Date: 20140515
  Serious: Yes (Death)
  Sender: FDA-Public Use
  Company Number: PHHY2013BR101200

PATIENT
  Sex: Female

DRUGS (1)
  1. ZELMAC [Suspect]
     Dosage: UNK UKN, UNK

REACTIONS (1)
  - Death [Fatal]
